FAERS Safety Report 5549664-X (Version None)
Quarter: 2007Q4

REPORT INFORMATION
  Report Type: 
  Country: None (occurrence: None)
  Receive Date: 20071212
  Receipt Date: 20071207
  Transmission Date: 20080405
  Serious: Yes (Other)
  Sender: FDA-Public Use
  Company Number: DE-AVENTIS-200713066DE

PATIENT
  Age: 70 Year
  Sex: Male
  Weight: 86 kg

DRUGS (3)
  1. TAXOTERE [Suspect]
     Route: 041
     Dates: start: 20070423, end: 20070423
  2. ZOLADEX [Concomitant]
     Dosage: DOSE: NOT REPORTED
     Route: 041
  3. ZOMETA [Concomitant]
     Route: 041

REACTIONS (2)
  - TOXIC OPTIC NEUROPATHY [None]
  - VISUAL ACUITY REDUCED [None]
